FAERS Safety Report 25045986 (Version 1)
Quarter: 2025Q1

REPORT INFORMATION
  Report Type: Spontaneous
  Country: US (occurrence: None)
  Receive Date: 20250305
  Receipt Date: 20250305
  Transmission Date: 20250409
  Serious: Yes (Hospitalization, Disabling, Other)
  Sender: FDA-CTU
  Company Number: None

PATIENT
  Age: 27 Year
  Sex: Male
  Weight: 135 kg

DRUGS (7)
  1. RISPERDAL [Suspect]
     Active Substance: RISPERIDONE
     Indication: Schizophrenia
  2. INVEGA [Suspect]
     Active Substance: PALIPERIDONE
  3. ZYPREXA [Suspect]
     Active Substance: OLANZAPINE
  4. HALDOL [Suspect]
     Active Substance: HALOPERIDOL
  5. ABILIFY [Suspect]
     Active Substance: ARIPIPRAZOLE
  6. VRAYLAR [Suspect]
     Active Substance: CARIPRAZINE
  7. CANNABIS SATIVA SUBSP. INDICA TOP [Suspect]
     Active Substance: CANNABIS SATIVA SUBSP. INDICA TOP

REACTIONS (25)
  - Pain [None]
  - Intellectual disability [None]
  - Decreased activity [None]
  - Loss of personal independence in daily activities [None]
  - Constipation [None]
  - Haemorrhoids [None]
  - Breast disorder male [None]
  - Asthenia [None]
  - Tinnitus [None]
  - Hallucination, auditory [None]
  - Condition aggravated [None]
  - Oral disorder [None]
  - Weight increased [None]
  - Abdominal pain upper [None]
  - Impaired driving ability [None]
  - Drug ineffective [None]
  - Loss of personal independence in daily activities [None]
  - Dyspepsia [None]
  - Visual impairment [None]
  - Mental impairment [None]
  - Abnormal behaviour [None]
  - Confusional state [None]
  - Brain fog [None]
  - Dizziness [None]
  - Loss of consciousness [None]
